FAERS Safety Report 13878743 (Version 1)
Quarter: 2017Q3

REPORT INFORMATION
  Report Type: Report from Study
  Country: CA (occurrence: CA)
  Receive Date: 20170817
  Receipt Date: 20170817
  Transmission Date: 20171127
  Serious: Yes (Death, Other)
  Sender: FDA-Public Use
  Company Number: PHHY2013CA102940

PATIENT
  Age: 65 Year
  Sex: Male

DRUGS (5)
  1. DEXAMETASON [Concomitant]
     Active Substance: DEXAMETHASONE
     Indication: PRODUCT USED FOR UNKNOWN INDICATION
     Route: 065
  2. REVLIMID [Concomitant]
     Active Substance: LENALIDOMIDE
     Indication: PRODUCT USED FOR UNKNOWN INDICATION
     Route: 065
  3. ZOMETA [Suspect]
     Active Substance: ZOLEDRONIC ACID
     Indication: PLASMA CELL MYELOMA
     Dosage: 4 MG, QMO (EVERY 4 WEEKS)
     Route: 065
     Dates: start: 20130717, end: 20140722
  4. ZOMETA [Suspect]
     Active Substance: ZOLEDRONIC ACID
     Dosage: 3.5 MG, QMO (EVERY 4 WEEKS)
     Route: 065
     Dates: start: 20140819, end: 20150428
  5. ZOMETA [Suspect]
     Active Substance: ZOLEDRONIC ACID
     Dosage: 4 MG, Q 12 WEEKS
     Route: 065
     Dates: start: 20170306

REACTIONS (15)
  - Feeling abnormal [Unknown]
  - Injection site haemorrhage [Unknown]
  - Vein disorder [Unknown]
  - Insomnia [Unknown]
  - Injection site discomfort [Unknown]
  - Plasma cell myeloma [Unknown]
  - Blood creatinine increased [Unknown]
  - Vessel puncture site swelling [Unknown]
  - Anxiety [Unknown]
  - Injection site pain [Unknown]
  - Asthenia [Unknown]
  - Fatigue [Unknown]
  - Wrong technique in product usage process [Unknown]
  - Blood pressure increased [Unknown]
  - Death [Fatal]

NARRATIVE: CASE EVENT DATE: 20140107
